FAERS Safety Report 26087051 (Version 1)
Quarter: 2025Q4

REPORT INFORMATION
  Report Type: Spontaneous
  Country: CN (occurrence: CN)
  Receive Date: 20251125
  Receipt Date: 20251125
  Transmission Date: 20260118
  Serious: Yes (Other)
  Sender: RANBAXY
  Company Number: CN-SUN PHARMACEUTICAL INDUSTRIES INC-2025R1-538032

PATIENT
  Age: 4 Year
  Sex: Male

DRUGS (3)
  1. DECITABINE [Suspect]
     Active Substance: DECITABINE
     Indication: Salvage therapy
     Dosage: UNK
     Route: 065
     Dates: start: 202411
  2. CLADRIBINE [Suspect]
     Active Substance: CLADRIBINE
     Indication: Salvage therapy
     Dosage: UNK
     Route: 065
     Dates: start: 202411
  3. TUCIDINOSTAT [Suspect]
     Active Substance: TUCIDINOSTAT
     Indication: Salvage therapy
     Dosage: UNK
     Route: 065
     Dates: start: 202411

REACTIONS (1)
  - Disease progression [Unknown]
